FAERS Safety Report 16261764 (Version 1)
Quarter: 2019Q2

REPORT INFORMATION
  Report Type: Spontaneous
  Country: PH (occurrence: PH)
  Receive Date: 20190501
  Receipt Date: 20190501
  Transmission Date: 20190711
  Serious: Yes (Death, Hospitalization, Other)
  Sender: FDA-Public Use
  Company Number: PH-B.I. PHARMACEUTICALS,INC./RIDGEFIELD-2019-BI-019578

PATIENT
  Age: 50 Year
  Sex: Male

DRUGS (7)
  1. GILOTRIF [Suspect]
     Active Substance: AFATINIB
     Route: 065
     Dates: start: 20140906, end: 20140908
  2. DOCETAXEL. [Concomitant]
     Active Substance: DOCETAXEL
     Indication: PRODUCT USED FOR UNKNOWN INDICATION
     Route: 065
     Dates: start: 201901
  3. GILOTRIF [Suspect]
     Active Substance: AFATINIB
     Indication: PRODUCT USED FOR UNKNOWN INDICATION
     Route: 065
     Dates: start: 201406
  4. OSIMERTINIB. [Concomitant]
     Active Substance: OSIMERTINIB
     Indication: PRODUCT USED FOR UNKNOWN INDICATION
     Route: 065
     Dates: start: 201706, end: 201806
  5. PEMETREXED/CISPLATIN [Concomitant]
     Indication: PRODUCT USED FOR UNKNOWN INDICATION
     Route: 065
     Dates: start: 201809, end: 201812
  6. GILOTRIF [Suspect]
     Active Substance: AFATINIB
     Route: 065
     Dates: end: 201706
  7. GILOTRIF [Suspect]
     Active Substance: AFATINIB
     Route: 048
     Dates: start: 20140801, end: 20140805

REACTIONS (17)
  - Metastases to central nervous system [Unknown]
  - Malignant neoplasm progression [Unknown]
  - Metastases to bone [Unknown]
  - Metastases to lung [Unknown]
  - Spinal disorder [Unknown]
  - Mucosal inflammation [Unknown]
  - Rash [Unknown]
  - Metastases to heart [Unknown]
  - Metastases to pleura [Unknown]
  - Death [Fatal]
  - Pain in extremity [Unknown]
  - Hemiparesis [Unknown]
  - Pericardial effusion malignant [Unknown]
  - Seizure [Unknown]
  - Metastases to liver [Unknown]
  - Malignant neoplasm progression [Unknown]
  - Gait inability [Unknown]

NARRATIVE: CASE EVENT DATE: 20140805
